FAERS Safety Report 13423644 (Version 3)
Quarter: 2017Q2

REPORT INFORMATION
  Report Type: Report from Study
  Country: TW (occurrence: TW)
  Receive Date: 20170410
  Receipt Date: 20170526
  Transmission Date: 20170830
  Serious: Yes (Hospitalization, Other)
  Sender: FDA-Public Use
  Company Number: TW-JNJFOC-20170406098

PATIENT
  Age: 57 Year
  Sex: Female
  Weight: 36 kg

DRUGS (4)
  1. METHOTREXATE. [Concomitant]
     Active Substance: METHOTREXATE
     Indication: RHEUMATOID ARTHRITIS
     Route: 048
     Dates: start: 20121128, end: 20170403
  2. PLAQUENIL [Concomitant]
     Active Substance: HYDROXYCHLOROQUINE SULFATE
     Indication: RHEUMATOID ARTHRITIS
     Route: 048
     Dates: start: 20121128, end: 20170403
  3. SIMPONI [Suspect]
     Active Substance: GOLIMUMAB
     Indication: RHEUMATOID ARTHRITIS
     Dosage: TOTAL 49 INJECTIONS THE PATIENT RECEIVED APPROXIMATELY
     Route: 058
     Dates: start: 20130424, end: 20170306
  4. SIMPONI [Suspect]
     Active Substance: GOLIMUMAB
     Indication: RHEUMATOID ARTHRITIS
     Route: 058
     Dates: start: 20170522

REACTIONS (3)
  - Uterine leiomyoma [Recovered/Resolved]
  - Arthralgia [Not Recovered/Not Resolved]
  - Ovarian cancer [Recovered/Resolved]

NARRATIVE: CASE EVENT DATE: 20170417
